FAERS Safety Report 4472893-3 (Version None)
Quarter: 2004Q4

REPORT INFORMATION
  Report Type: 
  Country: None (occurrence: None)
  Receive Date: 20041012
  Receipt Date: 20041012
  Transmission Date: 20050328
  Serious: Yes (Other)
  Sender: FDA-Public Use
  Company Number: None

PATIENT
  Age: 84 Year
  Sex: Male
  Weight: 74.8 kg

DRUGS (2)
  1. BRIMONIDINE [Suspect]
     Indication: GLAUCOMA
     Dosage: OU BID OU BID OPHTHALM
     Route: 047
     Dates: start: 20040817, end: 20040920
  2. TRAVOPROST [Concomitant]

REACTIONS (1)
  - CONJUNCTIVITIS [None]
